FAERS Safety Report 24467993 (Version 3)
Quarter: 2024Q4

REPORT INFORMATION
  Report Type: Spontaneous
  Country: US (occurrence: US)
  Receive Date: 20241018
  Receipt Date: 20241226
  Transmission Date: 20250115
  Serious: Yes (Hospitalization)
  Sender: UCB
  Company Number: US-UCBSA-2024029883

PATIENT
  Sex: Male
  Weight: 83.9 kg

DRUGS (1)
  1. BIMZELX [Suspect]
     Active Substance: BIMEKIZUMAB-BKZX
     Indication: Psoriasis
     Dosage: 320 MILLIGRAM, EV 4 WEEKS AT WEEK 0, 4, 8, 12 AND 16 WEEKS
     Route: 058
     Dates: start: 202405

REACTIONS (4)
  - Illness [Unknown]
  - Pain [Unknown]
  - Product availability issue [Unknown]
  - Product dose omission issue [Unknown]

NARRATIVE: CASE EVENT DATE: 20240101
